FAERS Safety Report 19689985 (Version 1)
Quarter: 2021Q3

REPORT INFORMATION
  Report Type: Spontaneous
  Country: US (occurrence: US)
  Receive Date: 20210811
  Receipt Date: 20210811
  Transmission Date: 20211014
  Serious: No
  Sender: FDA-Public Use
  Company Number: US-GLENMARK PHARMACEUTICALS-2021GMK066823

PATIENT

DRUGS (2)
  1. NORETHINDRONE. [Suspect]
     Active Substance: NORETHINDRONE
     Indication: PINEAL GLAND CYST
     Dosage: UNK
     Route: 048
  2. NORETHINDRONE. [Suspect]
     Active Substance: NORETHINDRONE
     Indication: PAIN

REACTIONS (1)
  - Drug effective for unapproved indication [Unknown]
